FAERS Safety Report 24456278 (Version 2)
Quarter: 2024Q4

REPORT INFORMATION
  Report Type: Spontaneous
  Country: JP (occurrence: JP)
  Receive Date: 20241017
  Receipt Date: 20241018
  Transmission Date: 20250115
  Serious: No
  Sender: ROCHE
  Company Number: JP-ROCHE-3506197

PATIENT
  Age: 10 Year
  Sex: Male

DRUGS (5)
  1. RITUXIMAB [Suspect]
     Active Substance: RITUXIMAB
     Indication: Myasthenia gravis
     Route: 042
  2. AZATHIOPRINE [Suspect]
     Active Substance: AZATHIOPRINE
     Indication: Myasthenia gravis
     Dosage: 15 - 45 MG/DAY
     Route: 065
  3. PREDNISOLONE [Concomitant]
     Active Substance: PREDNISOLONE
  4. TACROLIMUS [Concomitant]
     Active Substance: TACROLIMUS
  5. METHYLPREDNISOLONE [Concomitant]
     Active Substance: METHYLPREDNISOLONE

REACTIONS (2)
  - Treatment failure [Unknown]
  - No adverse event [Unknown]
